FAERS Safety Report 14770050 (Version 1)
Quarter: 2018Q2

REPORT INFORMATION
  Report Type: Spontaneous
  Country: US (occurrence: US)
  Receive Date: 20180417
  Receipt Date: 20180417
  Transmission Date: 20180711
  Serious: No
  Sender: FDA-Public Use
  Company Number: US-TEVA-2018-US-876762

PATIENT
  Sex: Female

DRUGS (1)
  1. TESTOSTERONE ENA INJ [Suspect]
     Active Substance: TESTOSTERONE ENANTHATE

REACTIONS (1)
  - Intercepted drug prescribing error [Unknown]
